FAERS Safety Report 4764821-8 (Version None)
Quarter: 2005Q3

REPORT INFORMATION
  Report Type: 
  Country: None (occurrence: None)
  Receive Date: 20050907
  Receipt Date: 20050826
  Transmission Date: 20060218
  Serious: Yes (Other)
  Sender: FDA-Public Use
  Company Number: 2005120930

PATIENT
  Sex: Female
  Weight: 56.6996 kg

DRUGS (3)
  1. ZITHROMAX [Suspect]
     Indication: SINUSITIS
     Dosage: 250 MG (250 MG, 1 IN 1 D)
  2. ATENOLOL [Concomitant]
  3. LEVLITE (ETHINYLESTRADIOL, LEVONORGESTREL) [Concomitant]

REACTIONS (1)
  - COELIAC DISEASE [None]
